FAERS Safety Report 4502506-3 (Version None)
Quarter: 2004Q4

REPORT INFORMATION
  Report Type: 
  Country: None (occurrence: None)
  Receive Date: 20041112
  Receipt Date: 20041114
  Transmission Date: 20050328
  Serious: Yes (Hospitalization, Other)
  Sender: FDA-Public Use
  Company Number: HQ5093007NOV2002

PATIENT
  Age: 73 Year
  Sex: Female

DRUGS (5)
  1. ARTANE [Suspect]
     Indication: PARKINSON'S DISEASE
     Dosage: 4 MG 1X PER 1 DAY
     Route: 048
     Dates: end: 20021024
  2. ARTANE [Suspect]
     Indication: PARKINSON'S DISEASE
     Dosage: 4 MG 1X PER 1 DAY
     Route: 048
     Dates: start: 20021104, end: 20021106
  3. UBRETID (DISTIGMINE BROMIDE) [Concomitant]
  4. SOLON  (SOFALCONE) [Concomitant]
  5. CLONAZEPAM [Concomitant]

REACTIONS (4)
  - CONDITION AGGRAVATED [None]
  - DEPRESSED LEVEL OF CONSCIOUSNESS [None]
  - TREMOR [None]
  - VOMITING [None]
